FAERS Safety Report 9297908 (Version 2)
Quarter: 2013Q2

REPORT INFORMATION
  Report Type: Spontaneous
  Country: US (occurrence: None)
  Receive Date: 20130515
  Receipt Date: 20130529
  Transmission Date: 20140414
  Serious: Yes (Other)
  Sender: FDA-Public Use
  Company Number: JPI-P-031617

PATIENT
  Age: 47 Year
  Sex: Female

DRUGS (1)
  1. XYREM [Suspect]
     Indication: NARCOLEPSY
     Dosage: ( 2.25 GM, 2 IN 1 D)
     Route: 048
     Dates: start: 20130125

REACTIONS (2)
  - Breast cancer [None]
  - Invasive ductal breast carcinoma [None]
